FAERS Safety Report 23352207 (Version 1)
Quarter: 2023Q4

REPORT INFORMATION
  Report Type: Spontaneous
  Country: US (occurrence: None)
  Receive Date: 20231229
  Receipt Date: 20231229
  Transmission Date: 20240109
  Serious: Yes (Death)
  Sender: FDA-Public Use
  Company Number: None

PATIENT
  Age: 68 Year
  Sex: Male

DRUGS (2)
  1. RUXOLITINIB [Suspect]
     Active Substance: RUXOLITINIB
     Indication: Myelofibrosis
     Dosage: FREQUENCY : TWICE A DAY;?
     Route: 048
     Dates: start: 20220608, end: 20231223
  2. JAKAFI [Concomitant]
     Active Substance: RUXOLITINIB
     Dates: start: 20220608, end: 20231223

REACTIONS (1)
  - Death [None]

NARRATIVE: CASE EVENT DATE: 20231223
